FAERS Safety Report 10067222 (Version 3)
Quarter: 2015Q2

REPORT INFORMATION
  Report Type: Report from Study
  Country: JP (occurrence: JP)
  Receive Date: 20140409
  Receipt Date: 20150629
  Transmission Date: 20150821
  Serious: Yes (Death, Life-Threatening)
  Sender: FDA-Public Use
  Company Number: JP-ALEXION PHARMACEUTICALS INC.-A201401187

PATIENT

DRUGS (6)
  1. SOLIRIS [Suspect]
     Active Substance: ECULIZUMAB
     Indication: HAEMOLYTIC URAEMIC SYNDROME
     Dosage: 900 MG, SINGLE
     Route: 042
     Dates: start: 20140307, end: 20140307
  2. FUNGUARD [Concomitant]
     Active Substance: MICAFUNGIN SODIUM
     Dosage: 50 MG, QD
     Route: 041
     Dates: start: 20140222, end: 20140313
  3. DALTEPARIN [Concomitant]
     Active Substance: DALTEPARIN
     Indication: PROPHYLAXIS
     Dosage: 4000 UNIT, QD
     Route: 041
     Dates: start: 20131211, end: 20140313
  4. FINIBAX [Concomitant]
     Active Substance: DORIPENEM MONOHYDRATE
     Indication: INFECTION
     Dosage: 0.5 G, BID
     Route: 041
     Dates: start: 20131201, end: 20140310
  5. FUNGUARD [Concomitant]
     Active Substance: MICAFUNGIN SODIUM
     Indication: INFECTION PROPHYLAXIS
     Dosage: 150 MG, QD
     Route: 041
     Dates: start: 20131209, end: 20140221
  6. SOL-MELCORT [Concomitant]
     Active Substance: METHYLPREDNISOLONE SODIUM SUCCINATE
     Indication: GRAFT VERSUS HOST DISEASE
     Dosage: 30 MG, QD
     Route: 041
     Dates: start: 20131223, end: 20140310

REACTIONS (4)
  - Pulmonary congestion [Fatal]
  - Thrombotic microangiopathy [Not Recovered/Not Resolved]
  - Cardio-respiratory arrest [Fatal]
  - Renal impairment [Fatal]

NARRATIVE: CASE EVENT DATE: 20140313
